FAERS Safety Report 8317768 (Version 5)
Quarter: 2016Q3

REPORT INFORMATION
  Report Type: Report from Study
  Country: FR (occurrence: FR)
  Receive Date: 20120102
  Receipt Date: 20160701
  Transmission Date: 20161109
  Serious: Yes (Hospitalization, Other)
  Sender: FDA-Public Use
  Company Number: FR-ROCHE-683703

PATIENT
  Age: 55 Year
  Sex: Female
  Weight: 63 kg

DRUGS (20)
  1. CORTANCYL [Concomitant]
     Active Substance: PREDNISONE
     Route: 065
  2. FOSAMAX [Concomitant]
     Active Substance: ALENDRONATE SODIUM
     Route: 065
     Dates: start: 199811, end: 200801
  3. PLAQUENIL [Concomitant]
     Active Substance: HYDROXYCHLOROQUINE SULFATE
  4. RITUXIMAB [Suspect]
     Active Substance: RITUXIMAB
     Indication: RHEUMATOID ARTHRITIS
     Dosage: RECEIVED 3 CYCLES
     Route: 042
  5. RITUXIMAB [Suspect]
     Active Substance: RITUXIMAB
     Dosage: ON DAY 15
     Route: 042
  6. CORTANCYL [Concomitant]
     Active Substance: PREDNISONE
     Route: 048
     Dates: start: 199606
  7. OROCAL (FRANCE) [Concomitant]
     Dosage: DRUG NAME:OROCAL VIT D3
     Route: 048
     Dates: start: 199811
  8. RITUXIMAB [Suspect]
     Active Substance: RITUXIMAB
     Dosage: ON DAY 15
     Route: 042
  9. RITUXIMAB [Suspect]
     Active Substance: RITUXIMAB
     Dosage: ON DAY 15
     Route: 042
  10. RITUXIMAB [Suspect]
     Active Substance: RITUXIMAB
     Route: 042
  11. CORTANCYL [Concomitant]
     Active Substance: PREDNISONE
     Route: 065
  12. REMICADE [Concomitant]
     Active Substance: INFLIXIMAB
     Route: 065
     Dates: end: 2006
  13. EFFERALGAN [Concomitant]
     Active Substance: ACETAMINOPHEN
  14. RITUXIMAB [Suspect]
     Active Substance: RITUXIMAB
     Route: 042
  15. ARAVA [Concomitant]
     Active Substance: LEFLUNOMIDE
     Route: 048
     Dates: start: 200606
  16. RITUXIMAB [Suspect]
     Active Substance: RITUXIMAB
     Dosage: ON DAY 1
     Route: 042
  17. CORTANCYL [Concomitant]
     Active Substance: PREDNISONE
     Route: 065
  18. RITUXIMAB [Suspect]
     Active Substance: RITUXIMAB
     Dosage: ON DAY 1
     Route: 042
  19. CORTANCYL [Concomitant]
     Active Substance: PREDNISONE
     Route: 065
  20. CORTANCYL [Concomitant]
     Active Substance: PREDNISONE
     Route: 065

REACTIONS (8)
  - Bronchitis [Recovered/Resolved]
  - Hepatic echinococciasis [Not Recovered/Not Resolved]
  - Asthenia [Recovered/Resolved]
  - Hyperthyroidism [Not Recovered/Not Resolved]
  - Osteoarthritis [Recovered/Resolved]
  - Headache [Recovered/Resolved]
  - Pneumonia [Recovered/Resolved]
  - Monarthritis [Unknown]

NARRATIVE: CASE EVENT DATE: 20060324
